FAERS Safety Report 7032321-0 (Version None)
Quarter: 2010Q4

REPORT INFORMATION
  Report Type: 
  Country: None (occurrence: None)
  Receive Date: 20101007
  Receipt Date: 20100623
  Transmission Date: 20110411
  Serious: Yes (Hospitalization)
  Sender: FDA-Public Use
  Company Number: LT-BRISTOL-MYERS SQUIBB COMPANY-15163843

PATIENT
  Age: 66 Year
  Sex: Male
  Weight: 86 kg

DRUGS (4)
  1. CETUXIMAB [Suspect]
     Indication: NON-SMALL CELL LUNG CANCER
     Dosage: RECENT INF:02DEC09 2MG/ML
     Route: 042
     Dates: start: 20091125
  2. CARBOPLATIN [Suspect]
     Indication: NON-SMALL CELL LUNG CANCER
     Dosage: RECENT INF:25NOV09
     Route: 042
     Dates: start: 20091125
  3. GEMCITABINE [Suspect]
     Indication: NON-SMALL CELL LUNG CANCER
     Dosage: RECENT INF:02DEC09
     Route: 042
     Dates: start: 20091125
  4. DEXAMETHASONE [Concomitant]
     Dates: start: 20091211, end: 20091211

REACTIONS (1)
  - THROMBOCYTOPENIA [None]
